FAERS Safety Report 21794806 (Version 7)
Quarter: 2025Q1

REPORT INFORMATION
  Report Type: Spontaneous
  Country: US (occurrence: US)
  Receive Date: 20221229
  Receipt Date: 20250220
  Transmission Date: 20250408
  Serious: No
  Sender: PFIZER
  Company Number: US-PFIZER INC-PV202200120160

PATIENT
  Age: 74 Year
  Sex: Male
  Weight: 120.18 kg

DRUGS (6)
  1. INLYTA [Suspect]
     Active Substance: AXITINIB
     Indication: Malignant melanoma
     Route: 048
     Dates: start: 20220203
  2. INLYTA [Suspect]
     Active Substance: AXITINIB
     Dosage: 5 MG, 2X/DAY
     Dates: start: 20220210, end: 20220902
  3. INLYTA [Suspect]
     Active Substance: AXITINIB
     Dosage: 3 MG, 2X/DAY
     Dates: start: 20221010
  4. INLYTA [Suspect]
     Active Substance: AXITINIB
     Dosage: 5 MG, DAILY (TAKE 3 TABLETS EVERY MORNING AND 2 TABLETS EVERY EVENING. TAKE 3 MG IN AM, 2 MG IN PM)
     Route: 048
  5. INLYTA [Suspect]
     Active Substance: AXITINIB
     Dosage: 5 MG, DAILY (DAILY 1 MG TAKE 3 TAB (3 MG)  IN AM AND 2 TAB (2 MG) EVERY PM)
     Route: 048
  6. KEYTRUDA [Concomitant]
     Active Substance: PEMBROLIZUMAB
     Dates: start: 20220202, end: 20220810

REACTIONS (2)
  - Diarrhoea [Recovered/Resolved]
  - Off label use [Unknown]

NARRATIVE: CASE EVENT DATE: 20220203
